FAERS Safety Report 10268387 (Version 1)
Quarter: 2014Q2

REPORT INFORMATION
  Report Type: Report from Study
  Country: BR (occurrence: BR)
  Receive Date: 20140630
  Receipt Date: 20140630
  Transmission Date: 20141212
  Serious: Yes (Other)
  Sender: FDA-Public Use
  Company Number: BR-ABBOTT-14X-020-1181670-00

PATIENT
  Age: 74 Year
  Sex: Female
  Weight: 65 kg

DRUGS (8)
  1. RYTMONORM [Suspect]
     Indication: ARRHYTHMIA
     Dosage: 300 MILLIGRAM; AT NIGHT
     Route: 048
  2. RYTMONORM [Suspect]
     Dosage: 300 MILLIGRAM; START DATE: 15-JUN-2010 (UNSURE); IN THE MORNING AND AT NIGHT
     Route: 048
     Dates: start: 201006
  3. BETAHISTINE DIHYDROCHLORIDE [Concomitant]
     Indication: LABYRINTHITIS
     Route: 048
     Dates: start: 201403
  4. RISEDRO [Concomitant]
     Indication: OSTEOPOROSIS
     Route: 048
     Dates: start: 2009
  5. GLUCOSAMINE SULPHATE [Concomitant]
     Indication: OSTEOARTHRITIS
     Dosage: 1500 MILLIGRAM; USED TOGETHER WITH CHONDROITIN SULFATE
     Route: 048
     Dates: start: 2009
  6. CHONDROITIN SULFATE [Concomitant]
     Indication: OSTEOARTHRITIS
     Dosage: 1200 MILLIGRAM; USED TOGETHER WITH GLUCOSAMINE SULPHATE
     Route: 048
     Dates: start: 2009
  7. CALCIUM + VITAMIN D [Concomitant]
     Indication: OSTEOPOROSIS
     Route: 048
     Dates: start: 2009
  8. CALCIUM + VITAMIN D [Concomitant]
     Indication: OSTEOARTHRITIS

REACTIONS (2)
  - Angina pectoris [Recovering/Resolving]
  - Agitation [Recovering/Resolving]
